FAERS Safety Report 5688462-3 (Version None)
Quarter: 2008Q1

REPORT INFORMATION
  Report Type: 
  Country: None (occurrence: None)
  Receive Date: 20080331
  Receipt Date: 20080319
  Transmission Date: 20080703
  Serious: Yes (Hospitalization)
  Sender: FDA-Public Use
  Company Number: AU-NOVOPROD-272081

PATIENT
  Age: 85 Year
  Sex: Male

DRUGS (10)
  1. NOVOLOG MIX 70/30 [Suspect]
     Indication: TYPE 2 DIABETES MELLITUS
     Dosage: 50+20 U,
  2. LANTUS [Suspect]
     Indication: TYPE 2 DIABETES MELLITUS
     Dosage: 20 U, QD
     Route: 058
     Dates: start: 20080112, end: 20080113
  3. NOVORAPID [Suspect]
  4. ASPIRIN [Concomitant]
     Route: 048
  5. CARDIZEM [Concomitant]
     Route: 048
  6. DIABEX [Concomitant]
     Indication: TYPE 2 DIABETES MELLITUS
     Route: 048
  7. ATORVASTATIN CALCIUM [Concomitant]
     Indication: HYPERLIPIDAEMIA
     Route: 048
  8. SPIRIVA [Concomitant]
  9. SERETIDE                           /01420901/ [Concomitant]
  10. COVERSYL                           /00790701/ [Concomitant]

REACTIONS (3)
  - BLOOD GLUCOSE INCREASED [None]
  - HYPOGLYCAEMIA [None]
  - LOWER RESPIRATORY TRACT INFECTION [None]
